FAERS Safety Report 5044331-3 (Version None)
Quarter: 2006Q2

REPORT INFORMATION
  Report Type: 
  Country: None (occurrence: None)
  Receive Date: 20060629
  Receipt Date: 20060621
  Transmission Date: 20061013
  Serious: Yes (Hospitalization)
  Sender: FDA-Public Use
  Company Number: CLOF-10259

PATIENT
  Age: 69 Year
  Sex: Male

DRUGS (31)
  1. CLOFARABINE [Suspect]
     Indication: ACUTE MYELOID LEUKAEMIA
     Dosage: 60 MG QD X 5 IV
     Route: 042
     Dates: start: 20060413, end: 20060417
  2. CYTARABINE [Suspect]
     Indication: ACUTE MYELOID LEUKAEMIA
     Dosage: 40 MG QD SC
     Route: 058
     Dates: start: 20060413, end: 20060427
  3. HALDOL [Concomitant]
  4. HYDROCORTISONE [Concomitant]
  5. TAMSULOSIN HCL [Concomitant]
  6. VALACYCLOVIR [Concomitant]
  7. MAGNESIUM HYDROXIDE TAB [Concomitant]
  8. ITRACONAZOLE [Concomitant]
  9. FUROSEMIDE [Concomitant]
  10. POTASSIUM CHLORIDE [Concomitant]
  11. CIPROFLOXACIN [Concomitant]
  12. MEROPENEM [Concomitant]
  13. LINEZOLID [Concomitant]
  14. FENTANYL CITRATE [Concomitant]
  15. MIDAZOLAM HYDROCHLORIDE [Concomitant]
  16. AMPHOTERICIN B [Concomitant]
  17. SENNA [Concomitant]
  18. INSULIN [Concomitant]
  19. LORAZEPAM [Concomitant]
  20. ESOMEPRAZOLE MAGNESIUM [Concomitant]
  21. VANCOMYCIN [Concomitant]
  22. PIPERACILLIN [Concomitant]
  23. HYDROCODONE [Concomitant]
  24. BACLOFEN [Concomitant]
  25. CEFPODOXIME PROXETIL [Concomitant]
  26. LEVABUTEROL [Concomitant]
  27. CYCLOBENZAPRINE HCL [Concomitant]
  28. NEUPOGEN [Concomitant]
  29. CEFEPIME [Concomitant]
  30. DEFEROXAMINE MESYLATE [Concomitant]
  31. VALACYCLOVIR [Concomitant]

REACTIONS (11)
  - AGITATION [None]
  - ANXIETY [None]
  - DYSPNOEA [None]
  - FEBRILE NEUTROPENIA [None]
  - OEDEMA PERIPHERAL [None]
  - PITTING OEDEMA [None]
  - PLEURAL EFFUSION [None]
  - PULMONARY HAEMORRHAGE [None]
  - PULMONARY OEDEMA [None]
  - THROMBOCYTOPENIA [None]
  - TRACHEAL HAEMORRHAGE [None]
